FAERS Safety Report 5824940-1 (Version None)
Quarter: 2008Q3

REPORT INFORMATION
  Report Type: 
  Country: None (occurrence: None)
  Receive Date: 20080728
  Receipt Date: 20080716
  Transmission Date: 20090109
  Serious: Yes (Other)
  Sender: FDA-Public Use
  Company Number: US-PFIZER INC-2008051505

PATIENT
  Sex: Female
  Weight: 70.3 kg

DRUGS (14)
  1. LYRICA [Suspect]
     Indication: NEURALGIA
     Route: 048
     Dates: start: 20080409, end: 20080501
  2. LYRICA [Suspect]
     Indication: SPINAL COLUMN STENOSIS
  3. ANTIHYPERTENSIVES [Concomitant]
     Indication: HYPERTENSION
  4. NEXIUM [Concomitant]
     Indication: GASTROOESOPHAGEAL REFLUX DISEASE
     Route: 048
  5. DARIFENACIN [Concomitant]
     Route: 048
  6. PROTONIX [Concomitant]
     Route: 048
  7. LIDODERM [Concomitant]
     Route: 062
  8. TRAMADOL HCL [Concomitant]
     Route: 048
  9. PERCOCET [Concomitant]
  10. COREG [Concomitant]
     Route: 048
  11. COREG [Concomitant]
     Route: 048
  12. DICLOFENAC SODIUM [Concomitant]
     Route: 048
  13. SKELAXIN [Concomitant]
  14. DIOVANE [Concomitant]
     Route: 048

REACTIONS (12)
  - ABASIA [None]
  - ASTHENIA [None]
  - ATAXIA [None]
  - FALL [None]
  - FATIGUE [None]
  - INCONTINENCE [None]
  - JOINT LOCK [None]
  - MUSCULOSKELETAL CHEST PAIN [None]
  - MYALGIA [None]
  - OEDEMA PERIPHERAL [None]
  - PAIN IN EXTREMITY [None]
  - UNEQUAL LIMB LENGTH [None]
